FAERS Safety Report 9030815 (Version 1)
Quarter: 2013Q1

REPORT INFORMATION
  Report Type: Spontaneous
  Country: GB (occurrence: GB)
  Receive Date: 20130123
  Receipt Date: 20130123
  Transmission Date: 20140127
  Serious: Yes (Death, Other)
  Sender: FDA-Public Use
  Company Number: GB-ROCHE-1180933

PATIENT
  Age: 53 Year
  Sex: Female

DRUGS (1)
  1. HERCEPTIN [Suspect]
     Indication: BREAST CANCER
     Dosage: 17 INJECTIONS IN TOTAL
     Route: 065
     Dates: start: 201109

REACTIONS (5)
  - Sudden death [Fatal]
  - Cardiac disorder [Unknown]
  - Malaise [Unknown]
  - Eating disorder [Unknown]
  - Fatigue [Unknown]
